FAERS Safety Report 25859677 (Version 1)
Quarter: 2025Q3

REPORT INFORMATION
  Report Type: Spontaneous
  Country: US (occurrence: US)
  Receive Date: 20250929
  Receipt Date: 20250929
  Transmission Date: 20251021
  Serious: No
  Sender: JOHNSON AND JOHNSON
  Company Number: US-JNJFOC-20250936819

PATIENT
  Age: 78 Year
  Sex: Female
  Weight: 81 kg

DRUGS (1)
  1. IMAAVY [Suspect]
     Active Substance: NIPOCALIMAB-AAHU
     Indication: Myasthenia gravis
     Route: 065
     Dates: start: 20250308

REACTIONS (1)
  - Accidental overdose [Unknown]

NARRATIVE: CASE EVENT DATE: 20250922
